FAERS Safety Report 15570503 (Version 1)
Quarter: 2018Q4

REPORT INFORMATION
  Report Type: Spontaneous
  Country: US (occurrence: US)
  Receive Date: 20181031
  Receipt Date: 20181031
  Transmission Date: 20190205
  Serious: Yes (Other)
  Sender: FDA-Public Use
  Company Number: US-NOVOPROD-628702

PATIENT
  Sex: Male

DRUGS (2)
  1. NOVOLOG [Suspect]
     Active Substance: INSULIN ASPART
     Indication: DIABETES MELLITUS
     Dosage: 10UNITS WITH EVERY MEAL, TWO TO THREE TIMES A DAY
     Route: 065
  2. NOVOLOG [Suspect]
     Active Substance: INSULIN ASPART
     Dosage: 10UNITS WITH EVERY MEAL, TWO TO THREE TIMES A DAY
     Route: 065
     Dates: start: 20180831

REACTIONS (4)
  - Loss of consciousness [Unknown]
  - Road traffic accident [Unknown]
  - Blood glucose decreased [Unknown]
  - Therapeutic response increased [Unknown]

NARRATIVE: CASE EVENT DATE: 20180831
